FAERS Safety Report 19626260 (Version 1)
Quarter: 2021Q3

REPORT INFORMATION
  Report Type: Spontaneous
  Country: JP (occurrence: JP)
  Receive Date: 20210729
  Receipt Date: 20210729
  Transmission Date: 20211014
  Serious: Yes (Other)
  Sender: FDA-Public Use
  Company Number: JP-PFIZER INC-202100916909

PATIENT
  Age: 70 Year
  Sex: Male

DRUGS (2)
  1. OXALIPLATIN. [Suspect]
     Active Substance: OXALIPLATIN
     Indication: GASTRIC CANCER
     Dosage: 170 MG ON DAY 1 (SYSTEMIC CHEMOTHERAPY; INFUSION)
     Route: 041
  2. TS?1 [Concomitant]
     Active Substance: GIMERACIL\OTERACIL\TEGAFUR
     Indication: GASTRIC CANCER
     Dosage: 120 MG/DAY ON DAYS 1?14(SYSTEMIC CHEMOTHERAPY)

REACTIONS (2)
  - Amaurosis fugax [Recovered/Resolved]
  - Ocular toxicity [Recovered/Resolved]
